FAERS Safety Report 6557048-0 (Version None)
Quarter: 2010Q1

REPORT INFORMATION
  Report Type: 
  Country: None (occurrence: None)
  Receive Date: 20100128
  Receipt Date: 20100126
  Transmission Date: 20100710
  Serious: Yes (Life-Threatening)
  Sender: FDA-Public Use
  Company Number: DE-MERCK-1001DEU00100

PATIENT
  Age: 59 Year
  Sex: Male
  Weight: 171 kg

DRUGS (1)
  1. JANUMET [Suspect]
     Indication: DIABETES MELLITUS
     Route: 048
     Dates: start: 20081125, end: 20091101

REACTIONS (1)
  - WEIGHT DECREASED [None]
